FAERS Safety Report 10258240 (Version 3)
Quarter: 2014Q3

REPORT INFORMATION
  Report Type: Spontaneous
  Country: US (occurrence: None)
  Receive Date: 20140623
  Receipt Date: 20140716
  Transmission Date: 20150326
  Serious: Yes (Other)
  Sender: FDA-Public Use
  Company Number: 2014-US-005959

PATIENT
  Age: 62 Year
  Sex: Female
  Weight: 61.2 kg

DRUGS (6)
  1. XYREM [Suspect]
     Active Substance: SODIUM OXYBATE
     Indication: CATAPLEXY
     Route: 048
     Dates: start: 201404, end: 201405
  2. DILAUDID [Suspect]
     Active Substance: HYDROMORPHONE HYDROCHLORIDE
     Indication: PRODUCT USED FOR UNKNOWN INDICATION
  3. XYREM [Suspect]
     Active Substance: SODIUM OXYBATE
     Indication: NARCOLEPSY
     Route: 048
     Dates: start: 201404, end: 201405
  4. PROTRIPTYLINE (PROTRIPTYLINE) [Concomitant]
  5. ADDERALL XR (AMFETAMINE ASPARTATE, AMFETAMINE SULFATE, DEXAMFETAMINE SACCHARATE, DEXAMFETAMINE SULFATE) [Concomitant]
  6. MODAFINIL (MODAFINIL) [Concomitant]
     Active Substance: MODAFINIL

REACTIONS (4)
  - Spinal fusion surgery [None]
  - Procedural pain [None]
  - Dyspnoea [None]
  - Surgery [None]

NARRATIVE: CASE EVENT DATE: 20140602
